FAERS Safety Report 20650902 (Version 1)
Quarter: 2022Q1

REPORT INFORMATION
  Report Type: Spontaneous
  Country: US (occurrence: US)
  Receive Date: 20220329
  Receipt Date: 20220329
  Transmission Date: 20220423
  Serious: Yes (Other)
  Sender: FDA-Public Use
  Company Number: US-SA-SAC20220328001223

PATIENT
  Age: 75 Year
  Sex: Male

DRUGS (1)
  1. ZANTAC [Suspect]
     Active Substance: RANITIDINE HYDROCHLORIDE
     Dosage: 75MG, BID
     Dates: start: 199902, end: 201911

REACTIONS (1)
  - Prostate cancer stage II [Not Recovered/Not Resolved]

NARRATIVE: CASE EVENT DATE: 20190225
